FAERS Safety Report 18234567 (Version 2)
Quarter: 2021Q2

REPORT INFORMATION
  Report Type: Spontaneous
  Country: CA (occurrence: CA)
  Receive Date: 20200904
  Receipt Date: 20210604
  Transmission Date: 20210717
  Serious: Yes (Death)
  Sender: FDA-Public Use
  Company Number: CA-TEVA-2020-CA-1821916

PATIENT
  Age: 90 Year
  Sex: Female

DRUGS (2)
  1. AMIODARONE [Suspect]
     Active Substance: AMIODARONE
     Indication: ARRHYTHMIA
     Dosage: 200 UNKNOWN DAILY;
  2. AMIODARONE [Suspect]
     Active Substance: AMIODARONE
     Route: 065

REACTIONS (5)
  - Pulmonary toxicity [Fatal]
  - Cough [Fatal]
  - Pneumonia [Fatal]
  - Haemoptysis [Fatal]
  - Oxygen saturation abnormal [Fatal]
